FAERS Safety Report 16788770 (Version 1)
Quarter: 2019Q3

REPORT INFORMATION
  Report Type: Spontaneous
  Country: US (occurrence: US)
  Receive Date: 20190910
  Receipt Date: 20190910
  Transmission Date: 20191005
  Serious: Yes (Death)
  Sender: FDA-Public Use
  Company Number: US-ROCHE-2399546

PATIENT
  Age: 73 Year
  Sex: Female

DRUGS (7)
  1. AZITHROMYCIN ANHYDROUS. [Concomitant]
     Active Substance: AZITHROMYCIN ANHYDROUS
  2. IPRATROPIUM [Concomitant]
     Active Substance: IPRATROPIUM
  3. TORSEMIDE. [Concomitant]
     Active Substance: TORSEMIDE
  4. MORPHINE [Concomitant]
     Active Substance: MORPHINE
  5. ESBRIET [Suspect]
     Active Substance: PIRFENIDONE
     Indication: IDIOPATHIC PULMONARY FIBROSIS
     Route: 048
     Dates: start: 20160105
  6. PREDNISONE. [Concomitant]
     Active Substance: PREDNISONE
  7. ALPRAZOLAM. [Concomitant]
     Active Substance: ALPRAZOLAM

REACTIONS (1)
  - Death [Fatal]
